FAERS Safety Report 4409961-8 (Version None)
Quarter: 2004Q3

REPORT INFORMATION
  Report Type: 
  Country: None (occurrence: None)
  Receive Date: 20040723
  Receipt Date: 20040714
  Transmission Date: 20050211
  Serious: Yes (Other)
  Sender: FDA-Public Use
  Company Number: 2003123615

PATIENT
  Age: 63 Year
  Sex: Female
  Weight: 83.9154 kg

DRUGS (19)
  1. LIPITOR [Suspect]
     Indication: ILL-DEFINED DISORDER
  2. NORVASC [Suspect]
     Indication: ILL-DEFINED DISORDER
  3. ACCUPRIL [Suspect]
     Indication: ILL-DEFINED DISORDER
  4. HYDROCHLOROTHIAZIDE [Suspect]
     Indication: ILL-DEFINED DISORDER
  5. POTASSIUM (POTASSIUM) [Suspect]
     Indication: ILL-DEFINED DISORDER
  6. LEVOTHYROXINE SODIUM [Suspect]
     Indication: ILL-DEFINED DISORDER
  7. ATENOLOL [Concomitant]
  8. LITHIUM CARBONATE [Concomitant]
  9. LITHIUM (LITHIUM) [Concomitant]
  10. LEVOTHYROXINE SODIUM [Concomitant]
  11. FUROSEMIDE [Concomitant]
  12. RANITIDINE [Concomitant]
  13. ALL OTHER THERAPEUTIC PRODUCTS (ALL OTHER THERAPEUTIC PRODUCTS0 [Concomitant]
  14. DYAZIDE [Concomitant]
  15. GARLIC (GARLIC) [Concomitant]
  16. IBUPROFEN [Concomitant]
  17. THOMAPYRIN N (ACETYLSALICYLIC ACID, CAFFEINE, PARACETAMOL) [Concomitant]
  18. ASCORBIC ACID [Concomitant]
  19. IMIPRAMINE [Concomitant]

REACTIONS (74)
  - ABNORMAL BEHAVIOUR [None]
  - ANXIETY [None]
  - ARRHYTHMIA [None]
  - ARRHYTHMIA SUPRAVENTRICULAR [None]
  - ASTHENIA [None]
  - ATRIAL FIBRILLATION [None]
  - ATRIAL FLUTTER [None]
  - ATRIOVENTRICULAR BLOCK FIRST DEGREE [None]
  - ATRIOVENTRICULAR BLOCK SECOND DEGREE [None]
  - BLOOD GLUCOSE INCREASED [None]
  - BRADYCARDIA [None]
  - BUNDLE BRANCH BLOCK RIGHT [None]
  - CARDIAC DISORDER [None]
  - CARDIAC FAILURE CONGESTIVE [None]
  - CHEST DISCOMFORT [None]
  - CHEST PAIN [None]
  - CONDUCTION DISORDER [None]
  - CONTUSION [None]
  - COUGH [None]
  - CREATINE PHOSPHOKINASE DECREASED [None]
  - CYCLOTHYMIC DISORDER [None]
  - DECREASED ACTIVITY [None]
  - DIARRHOEA [None]
  - DIFFICULTY IN WALKING [None]
  - DILATATION ATRIAL [None]
  - DIZZINESS [None]
  - DYSPEPSIA [None]
  - ECCHYMOSIS [None]
  - ELECTROCARDIOGRAM ST SEGMENT DEPRESSION [None]
  - ELECTROCARDIOGRAM ST-T SEGMENT ABNORMAL [None]
  - ELECTROCARDIOGRAM T WAVE INVERSION [None]
  - EXTRASYSTOLES [None]
  - FACE INJURY [None]
  - FALL [None]
  - FATIGUE [None]
  - FEELING ABNORMAL [None]
  - FEELING HOT [None]
  - FLUSHING [None]
  - HAEMATOMA [None]
  - HEAD INJURY [None]
  - HEADACHE [None]
  - HEAT EXHAUSTION [None]
  - HYPERTENSION [None]
  - HYPOKALAEMIA [None]
  - HYPOMANIA [None]
  - IMPLANT SITE REACTION [None]
  - INDIFFERENCE [None]
  - INJURY [None]
  - INSOMNIA [None]
  - LIMB INJURY [None]
  - MALAISE [None]
  - MOBILITY DECREASED [None]
  - MUSCLE CRAMP [None]
  - MUSCLE DISORDER [None]
  - MUSCLE INJURY [None]
  - MYOCARDIAL ISCHAEMIA [None]
  - NAUSEA [None]
  - NERVE INJURY [None]
  - NERVOUS SYSTEM DISORDER [None]
  - NERVOUSNESS [None]
  - NODAL RHYTHM [None]
  - OEDEMA PERIPHERAL [None]
  - OSTEOPENIA [None]
  - PAIN [None]
  - PAIN IN EXTREMITY [None]
  - PALPITATIONS [None]
  - PANIC ATTACK [None]
  - PLEURAL FIBROSIS [None]
  - REFUSAL OF TREATMENT BY PATIENT [None]
  - SEDATION [None]
  - SINUS ARRHYTHMIA [None]
  - SINUS BRADYCARDIA [None]
  - SUPRAVENTRICULAR EXTRASYSTOLES [None]
  - VENTRICULAR EXTRASYSTOLES [None]
